FAERS Safety Report 12226894 (Version 1)
Quarter: 2016Q1

REPORT INFORMATION
  Report Type: Spontaneous
  Country: US (occurrence: US)
  Receive Date: 20160331
  Receipt Date: 20160331
  Transmission Date: 20160526
  Serious: Yes (Other)
  Sender: FDA-Public Use
  Company Number: US-AMGEN-USASP2016039170

PATIENT
  Sex: Female

DRUGS (1)
  1. NEUPOGEN [Suspect]
     Active Substance: FILGRASTIM
     Indication: MANTLE CELL LYMPHOMA
     Dosage: UNK, UNK, 480 MCG/0.8 ML
     Route: 065

REACTIONS (3)
  - Knee arthroplasty [Unknown]
  - Injection site pain [Unknown]
  - Needle issue [Unknown]
